FAERS Safety Report 8836216 (Version 2)
Quarter: 2013Q4

REPORT INFORMATION
  Report Type: Spontaneous
  Country: US (occurrence: US)
  Receive Date: 20121011
  Receipt Date: 20131122
  Transmission Date: 20140711
  Serious: Yes (Other)
  Sender: FDA-Public Use
  Company Number: US-PFIZER INC-2012248974

PATIENT
  Age: 46 Year
  Sex: Female
  Weight: 97.51 kg

DRUGS (6)
  1. LYRICA [Suspect]
     Indication: NEUROPATHY PERIPHERAL
     Dosage: 300 MG, 3X/DAY
  2. LYRICA [Suspect]
     Indication: FIBROMYALGIA
     Dosage: 300 MG, 3X/DAY
  3. ZYPREXA [Suspect]
     Dosage: UNK
  4. PROPRANOLOL [Concomitant]
     Indication: MIGRAINE PROPHYLAXIS
     Dosage: 40 MG, AS NEEDED
  5. SEROQUEL [Concomitant]
     Dosage: 25MG TO 50MG DAILY
  6. AMITRIPTYLINE [Concomitant]
     Indication: SLEEP DISORDER
     Dosage: 50MG TO 100MG DAILY

REACTIONS (9)
  - Blood pressure decreased [Unknown]
  - Nervous system disorder [Unknown]
  - Herpes zoster [Unknown]
  - Hypoaesthesia [Unknown]
  - Pre-existing condition improved [Unknown]
  - Therapeutic response unexpected [Unknown]
  - Bone pain [Unknown]
  - Weight increased [Unknown]
  - Weight decreased [Unknown]
